FAERS Safety Report 4296082-0 (Version None)
Quarter: 2004Q1

REPORT INFORMATION
  Report Type: 
  Country: None (occurrence: None)
  Receive Date: 20040212
  Receipt Date: 20040204
  Transmission Date: 20041129
  Serious: Yes (Other)
  Sender: FDA-Public Use
  Company Number: HQWYE816104FEB04

PATIENT
  Age: 65 Year
  Sex: Male

DRUGS (1)
  1. CORDAREX (AMIODARONE, TABLET) [Suspect]
     Indication: ARRHYTHMIA
     Dosage: ORAL
     Route: 048
     Dates: start: 20030901

REACTIONS (3)
  - BLOOD ALKALINE PHOSPHATASE INCREASED [None]
  - HEPATIC ENZYME INCREASED [None]
  - JAUNDICE [None]
